FAERS Safety Report 21249724 (Version 1)
Quarter: 2022Q3

REPORT INFORMATION
  Report Type: Spontaneous
  Country: US (occurrence: None)
  Receive Date: 20220823
  Receipt Date: 20220823
  Transmission Date: 20221027
  Serious: Yes (Other)
  Sender: FDA-Public Use
  Company Number: None

PATIENT
  Age: 85 Year
  Sex: Female

DRUGS (1)
  1. CAPECITABINE [Suspect]
     Active Substance: CAPECITABINE
     Dosage: 2000MG OTHER ORAL
     Route: 048

REACTIONS (7)
  - Upper respiratory tract infection [None]
  - Epistaxis [None]
  - Therapy interrupted [None]
  - Dry skin [None]
  - Chest pain [None]
  - Neck pain [None]
  - Musculoskeletal pain [None]

NARRATIVE: CASE EVENT DATE: 20220823
